FAERS Safety Report 9354470 (Version 1)
Quarter: 2013Q2

REPORT INFORMATION
  Report Type: Spontaneous
  Country: US (occurrence: US)
  Receive Date: 20130618
  Receipt Date: 20130618
  Transmission Date: 20140414
  Serious: Yes (Hospitalization)
  Sender: FDA-Public Use
  Company Number: US-ELI_LILLY_AND_COMPANY-US_000642672

PATIENT
  Age: 72 Year
  Sex: Female

DRUGS (4)
  1. VANCOMYCIN HYDROCHLORIDE [Suspect]
     Indication: ABDOMINAL ABSCESS
     Dosage: UNK, UNKNOWN
  2. CLINDAMYCIN [Concomitant]
     Indication: ABDOMINAL ABSCESS
     Dosage: UNK, UNKNOWN
  3. GENTAMICIN [Concomitant]
     Indication: ABDOMINAL ABSCESS
     Dosage: UNK, UNKNOWN
  4. RANITIDINE [Concomitant]
     Dosage: UNK, UNKNOWN

REACTIONS (1)
  - Linear IgA disease [Recovered/Resolved]
